FAERS Safety Report 16828484 (Version 4)
Quarter: 2019Q4

REPORT INFORMATION
  Report Type: Spontaneous
  Country: US (occurrence: US)
  Receive Date: 20190919
  Receipt Date: 20191121
  Transmission Date: 20200122
  Serious: No
  Sender: FDA-Public Use
  Company Number: US-SA-2019SA257638

PATIENT
  Age: 65 Year
  Sex: Female
  Weight: 46.2 kg

DRUGS (9)
  1. NORMAL SALINE [Concomitant]
     Active Substance: SODIUM CHLORIDE
     Indication: FLUSHING
     Dosage: 0.9 %, UNK
     Route: 042
     Dates: start: 20190801
  2. SODIUM CHLORIDE. [Concomitant]
     Active Substance: SODIUM CHLORIDE
     Indication: FLUSHING
     Dosage: 0.9 %, UNK
     Route: 042
     Dates: start: 20190801
  3. STERILE WATER [Concomitant]
     Active Substance: WATER
     Dosage: 1 EACH, UNK
     Route: 042
     Dates: start: 20190801
  4. VITAMIN B [Concomitant]
     Active Substance: VITAMIN B
     Dosage: 1 TAB, QD
     Route: 048
     Dates: start: 20170802
  5. PROLIA [Concomitant]
     Active Substance: DENOSUMAB
     Dosage: 60 MG, Q6M
     Route: 058
     Dates: start: 20170320
  6. VITAMIN D3 [Concomitant]
     Active Substance: CHOLECALCIFEROL
     Dosage: 1 CAP, QD
     Route: 048
     Dates: start: 20151209
  7. ACETAMINOPHEN. [Concomitant]
     Active Substance: ACETAMINOPHEN
     Indication: PREMEDICATION
     Dosage: 650 MG, UNK
     Route: 048
     Dates: start: 20190801
  8. EPINEPHRINE. [Concomitant]
     Active Substance: EPINEPHRINE
     Indication: ANAPHYLACTIC REACTION
     Dosage: 0.3 MG, PRN
     Route: 030
     Dates: start: 20190801
  9. CEREZYME [Suspect]
     Active Substance: IMIGLUCERASE
     Indication: GAUCHER^S DISEASE
     Dosage: 2800 UNITS (60.60U/KG), QOW
     Route: 042
     Dates: start: 20040317

REACTIONS (6)
  - Dehydration [Unknown]
  - Dry skin [Unknown]
  - Decreased appetite [Unknown]
  - Cough [Not Recovered/Not Resolved]
  - Dizziness postural [Unknown]
  - Photopsia [Unknown]

NARRATIVE: CASE EVENT DATE: 20190905
